FAERS Safety Report 12312360 (Version 2)
Quarter: 2016Q2

REPORT INFORMATION
  Report Type: Spontaneous
  Country: US (occurrence: US)
  Receive Date: 20160428
  Receipt Date: 20160502
  Transmission Date: 20160815
  Serious: Yes (Other)
  Sender: FDA-Public Use
  Company Number: US-JNJFOC-20160418761

PATIENT
  Sex: Male

DRUGS (10)
  1. TYLENOL EXTRA STRENGTH [Suspect]
     Active Substance: ACETAMINOPHEN
     Indication: ARTHRALGIA
     Dosage: TWO 500MG CAPLETS DAILY AT BEDTIME AND SOMETIMES TWICE DAILY
     Route: 048
  2. BABY ASPIRIN [Concomitant]
     Active Substance: ASPIRIN
     Indication: PRODUCT USED FOR UNKNOWN INDICATION
     Route: 065
  3. ALLOPURINOL. [Concomitant]
     Active Substance: ALLOPURINOL
     Indication: GOUT
     Route: 065
  4. ASPIRIN. [Concomitant]
     Active Substance: ASPIRIN
     Indication: PRODUCT USED FOR UNKNOWN INDICATION
     Route: 065
  5. TYLENOL EXTRA STRENGTH [Suspect]
     Active Substance: ACETAMINOPHEN
     Indication: HEADACHE
     Dosage: ACCIDENTALLY TOOK 2 PARACETAMOL AT 18:45 AND TOOK 2 ADDITIONAL PARACETAMOL AT 21:30.
     Route: 048
     Dates: start: 20160418
  6. TYLENOL EXTRA STRENGTH [Suspect]
     Active Substance: ACETAMINOPHEN
     Indication: ARTHRALGIA
     Dosage: ACCIDENTALLY TOOK 2 PARACETAMOL AT 18:45 AND TOOK 2 ADDITIONAL PARACETAMOL AT 21:30.
     Route: 048
     Dates: start: 20160418
  7. AMLODIPINE [Concomitant]
     Active Substance: AMLODIPINE BESYLATE
     Indication: BLOOD PRESSURE ABNORMAL
     Route: 065
  8. TYLENOL EXTRA STRENGTH [Suspect]
     Active Substance: ACETAMINOPHEN
     Indication: HEADACHE
     Dosage: TWO 500MG CAPLETS DAILY AT BEDTIME AND SOMETIMES TWICE DAILY
     Route: 048
  9. VITAMINS NOS [Concomitant]
     Active Substance: VITAMINS
     Indication: PRODUCT USED FOR UNKNOWN INDICATION
     Route: 065
  10. CHOLESTEROL [Concomitant]
     Active Substance: CHOLESTEROL
     Indication: BLOOD CHOLESTEROL
     Route: 065

REACTIONS (2)
  - Atrial fibrillation [Unknown]
  - Extra dose administered [Unknown]
